FAERS Safety Report 15563422 (Version 2)
Quarter: 2018Q4

REPORT INFORMATION
  Report Type: Report from Study
  Country: US (occurrence: US)
  Receive Date: 20181029
  Receipt Date: 20181109
  Transmission Date: 20190205
  Serious: Yes (Death, Hospitalization)
  Sender: FDA-Public Use
  Company Number: US-ACTELION-A-NJ2018-180829

PATIENT
  Age: 86 Year
  Sex: Female

DRUGS (2)
  1. SILDENAFIL. [Concomitant]
     Active Substance: SILDENAFIL
     Dosage: 20 MG, TID
  2. OPSUMIT [Suspect]
     Active Substance: MACITENTAN
     Indication: PULMONARY ARTERIAL HYPERTENSION
     Dosage: 10 MG, QD
     Route: 048
     Dates: start: 20180912

REACTIONS (9)
  - Subdural haemorrhage [Unknown]
  - Death [Fatal]
  - Respiratory distress [Unknown]
  - Pneumothorax [Unknown]
  - Pneumonia [Recovered/Resolved]
  - Cardiac failure congestive [Unknown]
  - Unevaluable event [Unknown]
  - Fall [Unknown]
  - Facial bones fracture [Unknown]

NARRATIVE: CASE EVENT DATE: 201810
